FAERS Safety Report 5960122-0 (Version None)
Quarter: 2008Q4

REPORT INFORMATION
  Report Type: 
  Country: None (occurrence: None)
  Receive Date: 20081120
  Receipt Date: 20081113
  Transmission Date: 20090506
  Serious: Yes (Other)
  Sender: FDA-Public Use
  Company Number: ES-BAXTER-2008BH010011

PATIENT
  Age: 35 Year
  Sex: Male

DRUGS (9)
  1. GAMMAGARD LIQUID [Suspect]
     Indication: CONGENITAL HYPOGAMMAGLOBULINAEMIA
     Route: 042
     Dates: start: 20080108, end: 20080820
  2. GAMMAGARD LIQUID [Suspect]
     Route: 042
     Dates: start: 20080108, end: 20080820
  3. GAMMAGARD LIQUID [Suspect]
     Route: 042
     Dates: start: 20080108, end: 20080820
  4. GAMMAGARD LIQUID [Suspect]
     Route: 042
     Dates: start: 20080108, end: 20080820
  5. GAMMAGARD LIQUID [Suspect]
     Route: 042
     Dates: start: 20080108, end: 20080820
  6. FLEBOGAMMA [Suspect]
     Indication: CONGENITAL HYPOGAMMAGLOBULINAEMIA
     Route: 042
     Dates: start: 20080108, end: 20080820
  7. FLEBOGAMMA [Suspect]
     Route: 042
     Dates: start: 20080108, end: 20080820
  8. FLEBOGAMMA [Suspect]
     Route: 042
     Dates: start: 20080108, end: 20080820
  9. FLEBOGAMMA [Suspect]
     Route: 042
     Dates: start: 20080108, end: 20080820

REACTIONS (2)
  - DIARRHOEA [None]
  - HEPATITIS B [None]
